FAERS Safety Report 7469273-5 (Version None)
Quarter: 2011Q2

REPORT INFORMATION
  Report Type: 
  Country: None (occurrence: None)
  Receive Date: 20110429
  Receipt Date: 20110307
  Transmission Date: 20111010
  Serious: Yes (Other)
  Sender: FDA-Public Use
  Company Number: AUR-APL-2011-00653

PATIENT
  Age: 57 Year
  Sex: Male
  Weight: 77 kg

DRUGS (3)
  1. ^UNSPECIFIED DIURETICS^ [Concomitant]
  2. TAMSULOSIN HCL [Concomitant]
  3. SIMVASTATIN [Suspect]
     Dosage: 10MG
     Dates: start: 20100920, end: 20110218

REACTIONS (1)
  - MUSCLE RUPTURE [None]
